FAERS Safety Report 23579277 (Version 4)
Quarter: 2024Q4

REPORT INFORMATION
  Report Type: Report from Study
  Country: US (occurrence: US)
  Receive Date: 20240229
  Receipt Date: 20241030
  Transmission Date: 20250115
  Serious: Yes (Other)
  Sender: ABBVIE
  Company Number: US-ABBVIE-5656384

PATIENT
  Sex: Female

DRUGS (2)
  1. IMBRUVICA [Suspect]
     Active Substance: IBRUTINIB
     Indication: Chronic lymphocytic leukaemia
     Route: 048
     Dates: start: 20200218
  2. IMBRUVICA [Suspect]
     Active Substance: IBRUTINIB
     Indication: Chronic lymphocytic leukaemia
     Route: 048
     Dates: start: 20230731, end: 202407

REACTIONS (17)
  - Macular degeneration [Unknown]
  - Skin odour abnormal [Recovering/Resolving]
  - Cough [Unknown]
  - Nausea [Unknown]
  - Diarrhoea [Unknown]
  - Breast swelling [Unknown]
  - Weight decreased [Unknown]
  - Decreased appetite [Unknown]
  - Lymphoedema [Unknown]
  - Viral infection [Unknown]
  - Gastrointestinal disorder [Unknown]
  - Insomnia [Unknown]
  - Swelling [Recovering/Resolving]
  - Pain [Unknown]
  - Joint swelling [Unknown]
  - Feeding disorder [Unknown]
  - Dairy intolerance [Unknown]

NARRATIVE: CASE EVENT DATE: 20230101
